FAERS Safety Report 16650094 (Version 1)
Quarter: 2019Q3

REPORT INFORMATION
  Report Type: Spontaneous
  Country: US (occurrence: US)
  Receive Date: 20190731
  Receipt Date: 20190731
  Transmission Date: 20191004
  Serious: Yes (Other)
  Sender: FDA-Public Use
  Company Number: US-ROCHE-2364389

PATIENT
  Sex: Female
  Weight: 99.43 kg

DRUGS (2)
  1. ESBRIET [Suspect]
     Active Substance: PIRFENIDONE
     Indication: SARCOIDOSIS
     Dosage: 3 CAPSULES 3 TIMES A DAY
     Route: 048
     Dates: start: 20190207, end: 20190723
  2. PLACEBO [Concomitant]
     Active Substance: UNSPECIFIED INGREDIENT
     Indication: SARCOIDOSIS
     Dosage: 3 CAPSULES 3 TIMES A DAY ;ONGOING: NO
     Route: 048
     Dates: start: 20190207, end: 20190723

REACTIONS (3)
  - Off label use [Unknown]
  - Rectal cancer [Not Recovered/Not Resolved]
  - Intentional product use issue [Unknown]
